FAERS Safety Report 12341758 (Version 1)
Quarter: 2016Q2

REPORT INFORMATION
  Report Type: Spontaneous
  Country: JP (occurrence: JP)
  Receive Date: 20160506
  Receipt Date: 20160506
  Transmission Date: 20160815
  Serious: Yes (Other)
  Sender: FDA-Public Use
  Company Number: JP-MYLANLABS-2016M1018105

PATIENT

DRUGS (2)
  1. ZOLMIPTRIPTAN [Suspect]
     Active Substance: ZOLMITRIPTAN
     Indication: HEADACHE
     Dosage: UNK
     Route: 048
     Dates: start: 20160420
  2. LENDORMIN [Concomitant]
     Active Substance: BROTIZOLAM
     Indication: PRODUCT USED FOR UNKNOWN INDICATION
     Dosage: 0.5 DF, HS
     Route: 048

REACTIONS (7)
  - Pain in jaw [Unknown]
  - Arrhythmia [Unknown]
  - Muscular weakness [Unknown]
  - Nausea [Unknown]
  - Palpitations [Unknown]
  - Nausea [None]
  - Chest discomfort [Unknown]

NARRATIVE: CASE EVENT DATE: 20160421
